FAERS Safety Report 18674305 (Version 1)
Quarter: 2020Q4

REPORT INFORMATION
  Report Type: Spontaneous
  Country: US (occurrence: US)
  Receive Date: 20201228
  Receipt Date: 20201228
  Transmission Date: 20210114
  Serious: Yes (Hospitalization, Other)
  Sender: FDA-Public Use
  Company Number: None

PATIENT
  Age: 57 Year
  Sex: Female
  Weight: 74 kg

DRUGS (2)
  1. REMDESIVIR. [Concomitant]
     Active Substance: REMDESIVIR
     Dates: start: 20201209, end: 20201213
  2. BARICITINIB. [Suspect]
     Active Substance: BARICITINIB
     Indication: COVID-19
     Route: 048
     Dates: start: 20201210, end: 20201215

REACTIONS (5)
  - Infection [None]
  - Pneumonia staphylococcal [None]
  - White blood cell count increased [None]
  - Therapy cessation [None]
  - Metabolic encephalopathy [None]

NARRATIVE: CASE EVENT DATE: 20201216
